FAERS Safety Report 13882567 (Version 1)
Quarter: 2017Q3

REPORT INFORMATION
  Report Type: Spontaneous
  Country: US (occurrence: US)
  Receive Date: 20170818
  Receipt Date: 20170818
  Transmission Date: 20171127
  Serious: Yes (Other)
  Sender: FDA-Public Use
  Company Number: US-ARIAD PHARMACEUTICALS, INC-2017US008719

PATIENT

DRUGS (5)
  1. ICLUSIG [Suspect]
     Active Substance: PONATINIB
     Indication: PRODUCT USED FOR UNKNOWN INDICATION
     Dosage: UNK
     Route: 048
  2. METFORMIN HCL [Concomitant]
     Active Substance: METFORMIN HYDROCHLORIDE
     Indication: PRODUCT USED FOR UNKNOWN INDICATION
     Dosage: 1000 MG, BID
     Route: 048
  3. GLIPIZIDE. [Concomitant]
     Active Substance: GLIPIZIDE
     Indication: PRODUCT USED FOR UNKNOWN INDICATION
     Dosage: 5 MG, BID
     Route: 048
  4. PIOGLITAZONE HCL [Concomitant]
     Active Substance: PIOGLITAZONE
     Indication: PRODUCT USED FOR UNKNOWN INDICATION
     Dosage: 15 MG, QD
     Route: 048
  5. LISINOPRIL. [Concomitant]
     Active Substance: LISINOPRIL
     Indication: NEPHROPROTECTIVE THERAPY
     Dosage: 20 MG, QD
     Route: 048

REACTIONS (18)
  - Cerebrovascular accident [Recovered/Resolved with Sequelae]
  - Anxiety [Unknown]
  - Depression [Unknown]
  - Gout [Unknown]
  - Pollakiuria [Unknown]
  - Sleep disorder [Unknown]
  - Arthralgia [Unknown]
  - Muscular weakness [Unknown]
  - Device use issue [Unknown]
  - Chest pain [Unknown]
  - Micturition urgency [Unknown]
  - Organic erectile dysfunction [Unknown]
  - Hypothyroidism [Unknown]
  - Fatigue [Unknown]
  - Dyslipidaemia [Unknown]
  - Dry skin [Unknown]
  - Hypertension [Unknown]
  - Musculoskeletal pain [Unknown]

NARRATIVE: CASE EVENT DATE: 2015
